FAERS Safety Report 12479649 (Version 8)
Quarter: 2019Q2

REPORT INFORMATION
  Report Type: Spontaneous
  Country: US (occurrence: US)
  Receive Date: 20160620
  Receipt Date: 20190613
  Transmission Date: 20190711
  Serious: Yes (Hospitalization)
  Sender: FDA-Public Use
  Company Number: US-PFIZER INC-2016286318

PATIENT
  Age: 52 Year
  Sex: Female

DRUGS (47)
  1. LYRICA [Suspect]
     Active Substance: PREGABALIN
     Indication: HEADACHE
     Dosage: 150 MG, 2X/DAY
     Route: 048
     Dates: start: 20161122
  2. LYRICA [Suspect]
     Active Substance: PREGABALIN
     Dosage: 150 MG, DAILY
     Route: 048
  3. ALBUTEROL SULFATE. [Concomitant]
     Active Substance: ALBUTEROL SULFATE
     Indication: COUGH
  4. MIRALAX [Concomitant]
     Active Substance: POLYETHYLENE GLYCOL 3350
     Dosage: UNK, DAILY [1 TSP PO IN LIQUID DAILY]
     Route: 048
  5. LYRICA [Suspect]
     Active Substance: PREGABALIN
     Indication: NEUROPATHY PERIPHERAL
     Dosage: 75 MG, 2X/DAY
     Dates: start: 1999
  6. CLARITIN [GLICLAZIDE] [Concomitant]
     Dosage: 10 MG, 1X/DAY(AM)
     Route: 048
     Dates: start: 2014
  7. ALBUTEROL SULFATE. [Concomitant]
     Active Substance: ALBUTEROL SULFATE
     Indication: DYSPNOEA
     Dosage: 2.5 MG, AS NEEDED (2.5 MG/3ML; INHALE 3 ML (2.5 MG) VIA NEBULIZER 4 TIMES PER DAY AS NEEDED)
     Route: 055
  8. CYCLOBENZAPRINE HCL [Concomitant]
     Active Substance: CYCLOBENZAPRINE HYDROCHLORIDE
     Indication: MUSCLE SPASMS
     Dosage: 10 MG, AS NEEDED(TAKE 1 TABLET (10 MG) BY MOUTH 3 TIMES PER DAY AS NEEDED)
     Route: 048
     Dates: start: 20160712
  9. FOLINIC PLUS [Concomitant]
     Dosage: 1 DF, DAILY (4-50-2 MG)
     Route: 048
     Dates: start: 20161122
  10. TYLENOL [Concomitant]
     Active Substance: ACETAMINOPHEN
     Dosage: 1000 MG, AS NEEDED(500 MG 2 TABS PO EVERY 4-6 HOURS AS NEEDED)(Q 4-6 DEGREE PRN)
     Route: 048
     Dates: start: 20161122
  11. INDERAL [Concomitant]
     Active Substance: PROPRANOLOL HYDROCHLORIDE
     Dosage: 20 MG, 1X/DAY
     Dates: start: 2014
  12. ASA [Concomitant]
     Active Substance: ASPIRIN
     Dosage: 65 MG, 1X/DAY
     Dates: start: 2013
  13. PHENERGAN [Concomitant]
     Active Substance: PROMETHAZINE HYDROCHLORIDE
     Dosage: 25 MG, AS NEEDED (EVERY 6-8 HOURS AS NEEDED)
     Route: 048
     Dates: start: 20161020
  14. ADVAIR DISKUS [Concomitant]
     Active Substance: FLUTICASONE PROPIONATE\SALMETEROL XINAFOATE
     Dosage: UNK, AS NEEDED
     Dates: start: 2000
  15. ACYCLOVIR. [Concomitant]
     Active Substance: ACYCLOVIR
     Dosage: 800 MG, 4X/DAY(4 TIMES PER DAY X 10 DAYS)
     Route: 048
     Dates: start: 20161122
  16. LORATADINE. [Concomitant]
     Active Substance: LORATADINE
     Dosage: 10 MG, DAILY
     Route: 048
  17. MELATONIN [Concomitant]
     Active Substance: MELATONIN
     Dosage: 5 MG, 1X/DAY (1 TABLET AT BEDTIME AS NEEDED)
     Route: 048
  18. PROPRANOLOL HCL [Concomitant]
     Active Substance: PROPRANOLOL HYDROCHLORIDE
     Indication: NAUSEA
     Dosage: 10 MG, 2X/DAY
     Route: 048
     Dates: start: 20160927
  19. TOPAMAX [Concomitant]
     Active Substance: TOPIRAMATE
     Dosage: 100 MG, 1X/DAY(P.M.)
     Route: 048
     Dates: start: 2014
  20. PROTONIX [Concomitant]
     Active Substance: PANTOPRAZOLE SODIUM
     Dosage: 40 MG, DAILY
     Route: 048
     Dates: start: 20161013
  21. LEVSIN SL [Concomitant]
     Active Substance: HYOSCYAMINE SULFATE
     Dosage: 0.125 MG, AS NEEDED (EVERY 8 HOURS)
     Route: 060
     Dates: start: 20160712
  22. LEVOTHYROXINE SODIUM. [Concomitant]
     Active Substance: LEVOTHYROXINE SODIUM
     Dosage: 75 UG, 1X/DAY (TAKE 1 TABLET (75 MCG) BY MOUTH DAILY IN THE MORNING ON AN EMPTY STOMACH)(AM)
     Route: 048
     Dates: start: 20160928
  23. MELATONIN [Concomitant]
     Active Substance: MELATONIN
     Dosage: 5 MG, AS NEEDED (1 P.O. HS PRN)
     Route: 048
  24. TOPAMAX [Concomitant]
     Active Substance: TOPIRAMATE
     Dosage: 100 MG, DAILY
     Route: 048
     Dates: start: 20160712
  25. FLEXERIL [Concomitant]
     Active Substance: CYCLOBENZAPRINE HYDROCHLORIDE
     Dosage: 10 MG, AS NEEDED(Q 8 DEGREE PRN)
     Route: 048
     Dates: start: 2010
  26. FLONASE [Concomitant]
     Active Substance: FLUTICASONE PROPIONATE
     Dosage: 2 SPRAYS ONE TIME IN EACH NOSTRIL
     Route: 045
     Dates: start: 20161122
  27. ADVAIR DISKUS [Concomitant]
     Active Substance: FLUTICASONE PROPIONATE\SALMETEROL XINAFOATE
     Dosage: 1 DF, AS NEEDED (1 PUFF INHALED ORALLY 2 TIMES PER DAY AS NEEDED)
     Route: 048
  28. XANAX [Concomitant]
     Active Substance: ALPRAZOLAM
     Indication: ANXIETY
     Dosage: 0.5 MG, AS NEEDED (3 TIMES PER DAY AS NEEDED)
     Route: 048
     Dates: start: 20160712
  29. ASPIRIN. [Concomitant]
     Active Substance: ASPIRIN
     Dosage: 81 MG, DAILY
     Route: 048
  30. INDERAL [Concomitant]
     Active Substance: PROPRANOLOL HYDROCHLORIDE
     Dosage: 10 MG, 2X/DAY(1/2 TAB AM AND 1/2 TAB P.M.)
     Route: 048
     Dates: start: 20160927
  31. PERCOCET [Concomitant]
     Active Substance: ACETAMINOPHEN\OXYCODONE HYDROCHLORIDE
     Dosage: UNK, AS NEEDED (OXYCODONE HYDROCHLORIDE 5, PARACETAMOL 325)
     Dates: start: 2015
  32. FLONASE [Concomitant]
     Active Substance: FLUTICASONE PROPIONATE
     Dosage: 2 DF, DAILY (2 SPRAYS DAILY)
     Dates: start: 2013
  33. CENTRUM SILVER [Concomitant]
     Active Substance: MINERALS\VITAMINS
     Dosage: 1 DF, DAILY
     Route: 048
  34. CARAFATE [Concomitant]
     Active Substance: SUCRALFATE
     Dosage: 100 MG, 4X/DAY(QID)
     Route: 048
  35. TRAMADOL HCL [Concomitant]
     Active Substance: TRAMADOL HYDROCHLORIDE
     Indication: FIBROMYALGIA
     Dosage: 50 MG, AS NEEDED (TAKE 1 TABLET (50 MG) BY MOUTH EVERY 12 HOURS AS NEEDED)
     Route: 048
     Dates: start: 20161122
  36. LYRICA [Suspect]
     Active Substance: PREGABALIN
     Indication: POST HERPETIC NEURALGIA
     Dosage: 75 MG, 3X/DAY
     Route: 048
  37. ZOLOFT [Concomitant]
     Active Substance: SERTRALINE HYDROCHLORIDE
     Dosage: 100 MG, 1X/DAY (AM)
     Route: 048
     Dates: start: 2014
  38. ZOLOFT [Concomitant]
     Active Substance: SERTRALINE HYDROCHLORIDE
     Dosage: 100 MG, DAILY (TAKE 1 TABLET (100 MG) BY MOUTH DAILY)
     Route: 048
     Dates: start: 20160712
  39. ASA [Concomitant]
     Active Substance: ASPIRIN
     Dosage: 81 MG, 1X/DAY(P.M.)
     Route: 048
  40. PHENERGAN [Concomitant]
     Active Substance: PROMETHAZINE HYDROCHLORIDE
     Indication: NAUSEA
     Dosage: 25 MG, AS NEEDED
     Route: 048
     Dates: start: 2011
  41. BENADRYL [Concomitant]
     Active Substance: DIPHENHYDRAMINE HYDROCHLORIDE
     Dosage: 25 MG, AS NEEDED
     Dates: start: 2015
  42. PROTONIX [Concomitant]
     Active Substance: PANTOPRAZOLE SODIUM
     Dosage: 40 MG, 1X/DAY(AM)
     Route: 048
     Dates: start: 2014
  43. CARAFATE [Concomitant]
     Active Substance: SUCRALFATE
     Dosage: 1 G, UNK(1 TABLET BY MOUTH MADE INTO SLURRY BY PATIENT. TAKE BEFORE MEALS AND BEDTIME)
     Route: 048
     Dates: start: 20160927
  44. VITAMIN D [Concomitant]
     Active Substance: VITAMIN D NOS
     Dosage: 20000 IU, WEEKLY
     Route: 048
     Dates: start: 20161122
  45. LYRICA [Suspect]
     Active Substance: PREGABALIN
     Indication: FIBROMYALGIA
     Dosage: 75 MG, 2X/DAY
     Route: 048
     Dates: start: 20160927, end: 20161122
  46. LEVSIN SL [Concomitant]
     Active Substance: HYOSCYAMINE SULFATE
     Indication: REFLUX GASTRITIS
     Dosage: 0.125 MG, AS NEEDED
     Route: 060
     Dates: start: 1999
  47. ALBUTEROL SULFATE. [Concomitant]
     Active Substance: ALBUTEROL SULFATE
     Indication: WHEEZING

REACTIONS (4)
  - Herpes zoster [Unknown]
  - Migraine [Recovered/Resolved]
  - Pain [Unknown]
  - Malaise [Unknown]

NARRATIVE: CASE EVENT DATE: 1999
